FAERS Safety Report 4576904-6 (Version None)
Quarter: 2005Q1

REPORT INFORMATION
  Report Type: 
  Country: None (occurrence: None)
  Receive Date: 20050207
  Receipt Date: 20050125
  Transmission Date: 20050727
  Serious: Yes (Hospitalization, Other)
  Sender: FDA-Public Use
  Company Number: HQWYE904227JAN05

PATIENT
  Sex: Female

DRUGS (3)
  1. PREMARIN [Suspect]
     Dosage: ORAL
     Route: 048
     Dates: start: 19860401, end: 19860923
  2. DEPO-ESTRADIOL [Suspect]
     Dosage: INJECTIONS;
     Dates: start: 19870224, end: 19900620
  3. ESTRADERM [Suspect]
     Dosage: PATCHES
     Dates: start: 19900620, end: 20000204

REACTIONS (2)
  - BREAST CANCER FEMALE [None]
  - ENDOMETRIOSIS [None]
